FAERS Safety Report 4263785-3 (Version None)
Quarter: 2004Q1

REPORT INFORMATION
  Report Type: 
  Country: None (occurrence: None)
  Receive Date: 20040102
  Receipt Date: 20031223
  Transmission Date: 20041129
  Serious: Yes (Hospitalization)
  Sender: FDA-Public Use
  Company Number: NSADSS2003007575

PATIENT
  Age: 66 Year
  Sex: Male
  Weight: 106 kg

DRUGS (7)
  1. LEUSTATIN [Suspect]
     Indication: HAIRY CELL LEUKAEMIA
  2. ALLOPURINOL [Concomitant]
  3. POTASSIUM (POTASSIUM) [Concomitant]
  4. VANCOMYCIN [Concomitant]
  5. HYDROCHLOROTHIAZIDE [Concomitant]
  6. LEVAQUIN [Concomitant]
  7. CHEMOTHERAPY (ANTINEOPLASTIC AGENTS) [Concomitant]

REACTIONS (1)
  - PNEUMONITIS [None]
